FAERS Safety Report 7500257-4 (Version None)
Quarter: 2011Q2

REPORT INFORMATION
  Report Type: 
  Country: None (occurrence: None)
  Receive Date: 20110524
  Receipt Date: 20100506
  Transmission Date: 20111010
  Serious: No
  Sender: FDA-Public Use
  Company Number: US-NOVEN-ALL1-2010-02679

PATIENT

DRUGS (3)
  1. DAYTRANA [Suspect]
     Dosage: 1/2 OF 20 MG. PATCH CUT IN HALF
     Route: 062
     Dates: start: 20090101
  2. DAYTRANA [Suspect]
     Dosage: TWO 20 MG. PATCHES
     Route: 062
     Dates: start: 20090101
  3. ZOLOFT [Concomitant]
     Dosage: 100 MG, 1X/DAY:QD
     Route: 048
     Dates: start: 20080101

REACTIONS (3)
  - WRONG TECHNIQUE IN DRUG USAGE PROCESS [None]
  - OVERDOSE [None]
  - NO ADVERSE EVENT [None]
